FAERS Safety Report 25345410 (Version 1)
Quarter: 2025Q2

REPORT INFORMATION
  Report Type: Spontaneous
  Country: RU (occurrence: RU)
  Receive Date: 20250522
  Receipt Date: 20250522
  Transmission Date: 20250716
  Serious: Yes (Other)
  Sender: ROCHE
  Company Number: RU-ROCHE-10000286073

PATIENT
  Age: 57 Year

DRUGS (1)
  1. ATEZOLIZUMAB [Suspect]
     Active Substance: ATEZOLIZUMAB
     Indication: Small cell lung cancer
     Route: 065

REACTIONS (4)
  - Adrenal neoplasm [Unknown]
  - Pain [Unknown]
  - Metastases to central nervous system [Unknown]
  - Central nervous system lesion [Unknown]
